FAERS Safety Report 10882264 (Version 1)
Quarter: 2015Q1

REPORT INFORMATION
  Report Type: Spontaneous
  Country: US (occurrence: None)
  Receive Date: 20150226
  Receipt Date: 20150226
  Transmission Date: 20150721
  Serious: Yes (Other)
  Sender: FDA-Public Use
  Company Number: 2015UCU075000042

PATIENT
  Age: 37 Year
  Sex: Female

DRUGS (24)
  1. AZATHIOPRINE. [Concomitant]
     Active Substance: AZATHIOPRINE
  2. HYDROCODONE BITARTRATE AND ACETAMINOPHEN [Concomitant]
     Active Substance: ACETAMINOPHEN\HYDROCODONE BITARTRATE
  3. ERGOCALCIFEROL. [Concomitant]
     Active Substance: ERGOCALCIFEROL
  4. CIMZIA [Suspect]
     Active Substance: CERTOLIZUMAB PEGOL
     Indication: CROHN^S DISEASE
     Dates: start: 20090925
  5. NATALIZUMAB [Concomitant]
     Active Substance: NATALIZUMAB
  6. CYANOCOBALAMIN. [Concomitant]
     Active Substance: CYANOCOBALAMIN
  7. METRONIDAZOLE. [Concomitant]
     Active Substance: METRONIDAZOLE
  8. LORATADINE. [Concomitant]
     Active Substance: LORATADINE
  9. MERCAPTOPURINE. [Suspect]
     Active Substance: MERCAPTOPURINE
     Route: 048
     Dates: start: 20100701
  10. MESALAMINE. [Concomitant]
     Active Substance: MESALAMINE
  11. CIPROFLOXACIN. [Concomitant]
     Active Substance: CIPROFLOXACIN
  12. INFLIXIMAB [Concomitant]
     Active Substance: INFLIXIMAB
  13. ONDANSETRON [Concomitant]
     Active Substance: ONDANSETRON
  14. PROMETHAZINE [Concomitant]
     Active Substance: PROMETHAZINE\PROMETHAZINE HYDROCHLORIDE
  15. OLOPATADINE HYDROCHLORIDE. [Concomitant]
     Active Substance: OLOPATADINE HYDROCHLORIDE
  16. HUMIRA [Suspect]
     Active Substance: ADALIMUMAB
     Dates: start: 20050818, end: 200612
  17. PREDNISONE. [Suspect]
     Active Substance: PREDNISONE
     Dates: start: 199512, end: 199603
  18. BUDESONIDE. [Concomitant]
     Active Substance: BUDESONIDE
  19. METHOTREXATE [Concomitant]
     Active Substance: METHOTREXATE
  20. FENTANYL. [Concomitant]
     Active Substance: FENTANYL
  21. MAGNESIUM OXIDE. [Concomitant]
     Active Substance: MAGNESIUM OXIDE
  22. LORATADINE. [Concomitant]
     Active Substance: LORATADINE
  23. MAGIC MOUTHWASH [Concomitant]
     Active Substance: DIPHENHYDRAMINE HYDROCHLORIDE\LIDOCAINE HYDROCHLORIDE\NYSTATIN
  24. ZITHROMAX [Concomitant]
     Active Substance: AZITHROMYCIN DIHYDRATE

REACTIONS (1)
  - Pneumonia [None]

NARRATIVE: CASE EVENT DATE: 20150123
